FAERS Safety Report 23510417 (Version 1)
Quarter: 2024Q1

REPORT INFORMATION
  Report Type: Spontaneous
  Country: CL (occurrence: None)
  Receive Date: 20240211
  Receipt Date: 20240211
  Transmission Date: 20240410
  Serious: Yes (Other)
  Sender: FDA-Public Use
  Company Number: CL-ROCHE-3503972

PATIENT
  Sex: Male
  Weight: 61 kg

DRUGS (6)
  1. AVASTIN [Suspect]
     Active Substance: BEVACIZUMAB
     Indication: Maculopathy
     Dosage: AVASTIN 1.25 MG/0.05ML
     Route: 050
     Dates: start: 20230321, end: 202306
  2. LOSARTAN [Concomitant]
     Active Substance: LOSARTAN
  3. ATORVASTATIN [Concomitant]
     Active Substance: ATORVASTATIN
  4. BISOPROLOL [Concomitant]
     Active Substance: BISOPROLOL\BISOPROLOL FUMARATE
  5. ASPIRIN [Concomitant]
     Active Substance: ASPIRIN
  6. BUDESONIDE [Concomitant]
     Active Substance: BUDESONIDE

REACTIONS (3)
  - Off label use [Unknown]
  - Acute myocardial infarction [Unknown]
  - Vision blurred [Unknown]
